FAERS Safety Report 25619113 (Version 1)
Quarter: 2025Q3

REPORT INFORMATION
  Report Type: Spontaneous
  Country: CA (occurrence: CA)
  Receive Date: 20250729
  Receipt Date: 20250729
  Transmission Date: 20251021
  Serious: Yes (Hospitalization, Other)
  Sender: ALEXION PHARMACEUTICALS
  Company Number: None

PATIENT
  Sex: Female
  Weight: 59 kg

DRUGS (2)
  1. SOLIRIS [Suspect]
     Active Substance: ECULIZUMAB
     Indication: Paroxysmal nocturnal haemoglobinuria
     Dosage: 600 MILLIGRAM, QW
  2. SOLIRIS [Suspect]
     Active Substance: ECULIZUMAB
     Dosage: 900 MILLIGRAM, Q2W

REACTIONS (15)
  - Anogenital warts [Recovered/Resolved]
  - Asthma [Recovered/Resolved]
  - Blood lactate dehydrogenase increased [Recovered/Resolved]
  - Chest pain [Recovered/Resolved]
  - Dyspnoea exertional [Recovered/Resolved]
  - Gastritis erosive [Recovered/Resolved]
  - Haemolysis [Recovered/Resolved]
  - Hepatic enzyme increased [Recovered/Resolved]
  - Hypoaesthesia [Recovered/Resolved]
  - Keratoconus [Recovered/Resolved]
  - Nephrolithiasis [Recovered/Resolved]
  - Pain in extremity [Recovered/Resolved]
  - Palpitations [Recovered/Resolved]
  - Pancreatitis [Recovered/Resolved]
  - Vaccination site abscess [Recovered/Resolved]
